FAERS Safety Report 14764577 (Version 4)
Quarter: 2018Q4

REPORT INFORMATION
  Report Type: Spontaneous
  Country: ES (occurrence: ES)
  Receive Date: 20180416
  Receipt Date: 20181207
  Transmission Date: 20190204
  Serious: Yes (Death, Hospitalization, Other)
  Sender: FDA-Public Use
  Company Number: PHHY2018ES062179

PATIENT
  Age: 64 Year
  Sex: Male

DRUGS (14)
  1. OXALIPLATIN. [Suspect]
     Active Substance: OXALIPLATIN
     Indication: RECTOSIGMOID CANCER STAGE IV
     Route: 065
  2. CETUXIMAB. [Suspect]
     Active Substance: CETUXIMAB
     Indication: RECTOSIGMOID CANCER STAGE IV
     Route: 065
  3. LORAZEPAM. [Concomitant]
     Active Substance: LORAZEPAM
     Indication: PRODUCT USED FOR UNKNOWN INDICATION
     Dosage: UNK
     Route: 065
  4. BEVACIZUMAB. [Suspect]
     Active Substance: BEVACIZUMAB
     Indication: RECTOSIGMOID CANCER STAGE IV
     Route: 065
  5. CAPECITABINE. [Suspect]
     Active Substance: CAPECITABINE
     Indication: RECTOSIGMOID CANCER STAGE IV
     Route: 065
  6. OMEPRAZOLE. [Concomitant]
     Active Substance: OMEPRAZOLE
     Indication: PRODUCT USED FOR UNKNOWN INDICATION
     Dosage: UNK
     Route: 065
  7. FOLINIC ACID [Suspect]
     Active Substance: LEUCOVORIN
     Indication: RECTOSIGMOID CANCER STAGE IV
     Route: 065
  8. FOLINIC ACID [Suspect]
     Active Substance: LEUCOVORIN
     Indication: METASTASES TO LIVER
  9. AFLIBERCEPT [Suspect]
     Active Substance: AFLIBERCEPT
     Indication: RECTOSIGMOID CANCER STAGE IV
     Dosage: UNK, CYCLIC
     Route: 065
  10. CALCIUM FOLINATE [Suspect]
     Active Substance: LEUCOVORIN CALCIUM
     Indication: RECTOSIGMOID CANCER STAGE IV
     Dosage: UNK, CYCLIC
     Route: 065
  11. FOLFIRI [Concomitant]
     Active Substance: FLUOROURACIL\IRINOTECAN\LEUCOVORIN
     Indication: PRODUCT USED FOR UNKNOWN INDICATION
     Dosage: UNK
     Route: 065
  12. IRINOTECAN [Suspect]
     Active Substance: IRINOTECAN
     Indication: RECTOSIGMOID CANCER STAGE IV
     Dosage: UNK
     Route: 041
  13. AFLIBERCEPT [Suspect]
     Active Substance: AFLIBERCEPT
     Indication: METASTASES TO LIVER
  14. FLUOROURACIL. [Suspect]
     Active Substance: FLUOROURACIL
     Indication: RECTOSIGMOID CANCER STAGE IV
     Dosage: UNK UNK, CYCLIC
     Route: 065

REACTIONS (27)
  - Off label use [Fatal]
  - Tachycardia [Fatal]
  - Renal failure [Fatal]
  - Inflammation [Fatal]
  - Blood creatinine increased [Fatal]
  - Klebsiella infection [Fatal]
  - Blood creatine phosphokinase increased [Fatal]
  - Leukocytosis [Fatal]
  - Candida infection [Fatal]
  - Induration [Fatal]
  - Chills [Fatal]
  - Erythema [Fatal]
  - Clostridial infection [Fatal]
  - Epistaxis [Fatal]
  - Proteus infection [Fatal]
  - C-reactive protein increased [Fatal]
  - Neutrophilia [Fatal]
  - Fournier^s gangrene [Fatal]
  - Pyrexia [Fatal]
  - Thrombocytopenia [Fatal]
  - Tenderness [Fatal]
  - Blood lactic acid increased [Fatal]
  - Prothrombin level decreased [Fatal]
  - Coagulopathy [Fatal]
  - Hypotension [Fatal]
  - Neoplasm progression [Unknown]
  - Neutropenia [Fatal]
